FAERS Safety Report 16730636 (Version 1)
Quarter: 2019Q3

REPORT INFORMATION
  Report Type: Spontaneous
  Country: US (occurrence: US)
  Receive Date: 20190708
  Receipt Date: 20190708
  Transmission Date: 20191005
  Serious: Yes (Life-Threatening, Hospitalization)
  Sender: FDA-Public Use
  Company Number: None

PATIENT
  Age: 52 Year
  Sex: Female

DRUGS (3)
  1. COSENTYX [Suspect]
     Active Substance: SECUKINUMAB
     Indication: PSORIATIC ARTHROPATHY
  2. COSENTYX [Suspect]
     Active Substance: SECUKINUMAB
     Indication: PSORIASIS
  3. TALTZ [Suspect]
     Active Substance: IXEKIZUMAB

REACTIONS (5)
  - Sepsis [None]
  - Infection [None]
  - Pyrexia [None]
  - Chills [None]
  - Throat tightness [None]

NARRATIVE: CASE EVENT DATE: 20190708
